FAERS Safety Report 9799556 (Version 2)
Quarter: 2015Q3

REPORT INFORMATION
  Report Type: Spontaneous
  Country: US (occurrence: US)
  Receive Date: 20140106
  Receipt Date: 20150806
  Transmission Date: 20151125
  Serious: Yes (Hospitalization)
  Sender: FDA-Public Use
  Company Number: US-GILEAD-2010-0030213

PATIENT
  Age: 67 Year
  Sex: Male

DRUGS (18)
  1. ASPIRIN FREE [Concomitant]
     Active Substance: ACETAMINOPHEN
  2. FISH OIL [Concomitant]
     Active Substance: FISH OIL
  3. GLIMEPIRIDE. [Concomitant]
     Active Substance: GLIMEPIRIDE
  4. SELENIUM [Concomitant]
     Active Substance: SELENIUM
  5. FUROSEMIDE. [Concomitant]
     Active Substance: FUROSEMIDE
  6. ACTOPLUS MET [Concomitant]
     Active Substance: METFORMIN HYDROCHLORIDE\PIOGLITAZONE HYDROCHLORIDE
  7. COUMADIN [Concomitant]
     Active Substance: WARFARIN SODIUM
  8. REVATIO [Concomitant]
     Active Substance: SILDENAFIL CITRATE
  9. METOLAZONE. [Concomitant]
     Active Substance: METOLAZONE
  10. POTASSIUM [Concomitant]
     Active Substance: POTASSIUM
  11. D3-50 [Concomitant]
  12. BP VIT 3 [Concomitant]
  13. PLAVIX [Concomitant]
     Active Substance: CLOPIDOGREL BISULFATE
  14. GARLIC. [Concomitant]
     Active Substance: GARLIC
  15. LETAIRIS [Suspect]
     Active Substance: AMBRISENTAN
     Indication: PULMONARY ARTERIAL HYPERTENSION
     Route: 048
     Dates: start: 20090909
  16. VITAMIN B COMPLEX [Concomitant]
     Active Substance: CYANOCOBALAMIN\DEXPANTHENOL\NIACINAMIDE\PYRIDOXINE HYDROCHLORIDE\RIBOFLAVIN 5^-PHOSPHATE SODIUM\THIAMINE HYDROCHLORIDE\VITAMIN B COMPLEX
  17. VITAMIN E [Concomitant]
     Active Substance: .ALPHA.-TOCOPHEROL
  18. MULTI-DAY TAB/IRON [Concomitant]

REACTIONS (1)
  - Dyspnoea [Unknown]

NARRATIVE: CASE EVENT DATE: 20100701
